FAERS Safety Report 9649756 (Version 1)
Quarter: 2013Q4

REPORT INFORMATION
  Report Type: Spontaneous
  Country: AU (occurrence: AU)
  Receive Date: 20131028
  Receipt Date: 20131028
  Transmission Date: 20140711
  Serious: Yes (Other)
  Sender: FDA-Public Use
  Company Number: AU-BAXTER-2013BAX041696

PATIENT
  Age: 36 Year
  Sex: Female

DRUGS (1)
  1. SYNTHAMIN 17 AMINO ACID 10% WITHOUT ELECTROLYTES AND GLUCOSE 50% 1000M [Suspect]
     Indication: PARENTERAL NUTRITION
     Route: 065

REACTIONS (1)
  - Septic shock [Recovered/Resolved]
